FAERS Safety Report 24936212 (Version 1)
Quarter: 2025Q1

REPORT INFORMATION
  Report Type: Report from Study
  Country: CA (occurrence: CA)
  Receive Date: 20250206
  Receipt Date: 20250206
  Transmission Date: 20250409
  Serious: Yes (Other)
  Sender: EXELIXIS
  Company Number: CA-IPSEN Group, Research and Development-2024-23001

PATIENT

DRUGS (17)
  1. CABOMETYX [Suspect]
     Active Substance: CABOZANTINIB S-MALATE
     Indication: Renal cell carcinoma
     Route: 065
     Dates: start: 20231201, end: 202409
  2. FOLIC ACID [Concomitant]
     Active Substance: FOLIC ACID
  3. ARANESP [Concomitant]
     Active Substance: DARBEPOETIN ALFA
  4. RENAGEL [Concomitant]
     Active Substance: SEVELAMER HYDROCHLORIDE
  5. PANTOPRAZOLE [Concomitant]
     Active Substance: PANTOPRAZOLE
  6. CALCITRIOL [Concomitant]
     Active Substance: CALCITRIOL
  7. M cal [Concomitant]
  8. CEFADROXIL [Concomitant]
     Active Substance: CEFADROXIL
  9. SITAGLIPTIN L-MALATE [Concomitant]
     Active Substance: SITAGLIPTIN L-MALATE
  10. PERINDOPRIL [Concomitant]
     Active Substance: PERINDOPRIL
  11. METOPROLOL [Concomitant]
     Active Substance: METOPROLOL
  12. AZITHROMYCIN [Concomitant]
     Active Substance: AZITHROMYCIN
  13. ACETAMINOPHEN [Concomitant]
     Active Substance: ACETAMINOPHEN
  14. LORAZEPAM [Concomitant]
     Active Substance: LORAZEPAM
  15. HYDROMORPHONE [Concomitant]
     Active Substance: HYDROMORPHONE
  16. FUCIDIN [Concomitant]
     Active Substance: FUSIDATE SODIUM
  17. METOCLOPRAMIDE [Concomitant]
     Active Substance: METOCLOPRAMIDE

REACTIONS (1)
  - Malignant neoplasm progression [Unknown]
